FAERS Safety Report 25074404 (Version 1)
Quarter: 2025Q1

REPORT INFORMATION
  Report Type: Spontaneous
  Country: US (occurrence: US)
  Receive Date: 20250313
  Receipt Date: 20250313
  Transmission Date: 20250408
  Serious: No
  Sender: SANDOZ
  Company Number: US-SANDOZ-SDZ2025US015470

PATIENT
  Age: 46 Year
  Sex: Female

DRUGS (2)
  1. ESTRADIOL [Suspect]
     Active Substance: ESTRADIOL
     Indication: Product used for unknown indication
     Dosage: BIW, WO TIMES A WEEK, 0.025MG/24H 8TTS
     Route: 062
     Dates: start: 2025
  2. ESTRADIOL [Suspect]
     Active Substance: ESTRADIOL
     Route: 062

REACTIONS (1)
  - Vaginal haemorrhage [Recovering/Resolving]

NARRATIVE: CASE EVENT DATE: 20250101
